FAERS Safety Report 8844511 (Version 2)
Quarter: 2013Q1

REPORT INFORMATION
  Report Type: Spontaneous
  Country: DK (occurrence: None)
  Receive Date: 20121012
  Receipt Date: 20130123
  Transmission Date: 20140127
  Serious: Yes (Other)
  Sender: FDA-Public Use
  Company Number: 2012MA012038

PATIENT
  Age: 89 Year
  Sex: Female

DRUGS (7)
  1. DONEPEZIL HYDROCHLORIDE [Suspect]
     Indication: DEMENTIA ALZHEIMER^S TYPE
  2. ACETYLSALICYLIC ACID [Concomitant]
  3. MOXONIDINE [Concomitant]
  4. LOSARTAN [Concomitant]
  5. RISEDRONIC ACID [Concomitant]
  6. QVAR [Concomitant]
  7. FUROSEMIDE [Concomitant]

REACTIONS (4)
  - Delusion [None]
  - Inappropriate affect [None]
  - Energy increased [None]
  - Abnormal behaviour [None]
